FAERS Safety Report 6207011-4 (Version None)
Quarter: 2009Q2

REPORT INFORMATION
  Report Type: 
  Country: None (occurrence: None)
  Receive Date: 20090521
  Receipt Date: 20090116
  Transmission Date: 20091009
  Serious: Yes (Life-Threatening, Hospitalization)
  Sender: FDA-Public Use
  Company Number: 2009BH000984

PATIENT
  Age: 71 Year
  Sex: Male

DRUGS (12)
  1. CYTOXAN [Suspect]
     Indication: CHRONIC LYMPHOCYTIC LEUKAEMIA
     Dosage: 750 MG/M**2; EVERY DAY; IV
     Route: 042
     Dates: start: 20081108, end: 20081217
  2. RITUXIMAB [Suspect]
     Indication: CHRONIC LYMPHOCYTIC LEUKAEMIA
     Dosage: 375 MG/M**2; EVERY DAY; IV
     Route: 042
     Dates: start: 20081106, end: 20081217
  3. ADRIAMYCIN RDF [Suspect]
     Indication: CHRONIC LYMPHOCYTIC LEUKAEMIA
     Dosage: 50 MG/M**2; EVERYDAY; IV
     Route: 042
     Dates: start: 20081106, end: 20081217
  4. VELCADE [Suspect]
     Indication: CHRONIC LYMPHOCYTIC LEUKAEMIA
     Dosage: 3.2 MG; EVERY DAY; IV
     Route: 042
     Dates: start: 20081106, end: 20081217
  5. PREDNISONE [Suspect]
     Indication: CHRONIC LYMPHOCYTIC LEUKAEMIA
  6. PRILOSEC [Concomitant]
  7. LISINOPRIL [Concomitant]
  8. GEMFIBROZIL [Concomitant]
  9. NEURONTIN [Concomitant]
  10. ACETYLSALICYLIC ACID SRT [Concomitant]
  11. ATIVAN [Concomitant]
  12. COMPAZINE [Concomitant]

REACTIONS (1)
  - FEBRILE NEUTROPENIA [None]
